FAERS Safety Report 17956618 (Version 1)
Quarter: 2020Q2

REPORT INFORMATION
  Report Type: Spontaneous
  Country: US (occurrence: US)
  Receive Date: 20200629
  Receipt Date: 20200629
  Transmission Date: 20200714
  Serious: No
  Sender: FDA-Public Use
  Company Number: US-MYLANLABS-2020M1058107

PATIENT
  Sex: Female
  Weight: 53 kg

DRUGS (1)
  1. ESTRADIOL VAGINAL CREAM USP [Suspect]
     Active Substance: ESTRADIOL
     Indication: MENOPAUSE
     Dosage: UNK
     Route: 067
     Dates: end: 20200614

REACTIONS (3)
  - Application site discomfort [Not Recovered/Not Resolved]
  - Product physical consistency issue [Unknown]
  - Product residue present [Not Recovered/Not Resolved]
